FAERS Safety Report 23845572 (Version 1)
Quarter: 2024Q2

REPORT INFORMATION
  Report Type: Spontaneous
  Country: US (occurrence: US)
  Receive Date: 20240511
  Receipt Date: 20240511
  Transmission Date: 20240715
  Serious: Yes (Death, Other)
  Sender: FDA-Public Use
  Company Number: US-CHIESI-2024CHF02671

PATIENT
  Age: 73 Year
  Sex: Male
  Weight: 69.8 kg

DRUGS (6)
  1. FERRIPROX [Suspect]
     Active Substance: DEFERIPRONE
     Indication: Haemochromatosis
     Dosage: 1000 MILLIGRAM, TID
     Route: 048
     Dates: start: 20230908
  2. FERRIPROX [Suspect]
     Active Substance: DEFERIPRONE
     Indication: Red blood cell transfusion
  3. FERRIPROX [Suspect]
     Active Substance: DEFERIPRONE
     Indication: Polycythaemia vera
  4. FERRIPROX [Suspect]
     Active Substance: DEFERIPRONE
     Indication: Myelofibrosis
  5. DECITABINE [Concomitant]
     Active Substance: DECITABINE
     Indication: Product used for unknown indication
     Dosage: UNK
  6. REBLOZYL [Concomitant]
     Active Substance: LUSPATERCEPT-AAMT
     Indication: Product used for unknown indication
     Dosage: UNK

REACTIONS (6)
  - Myelofibrosis [Unknown]
  - Disease progression [Unknown]
  - Cerebral haemorrhage [Fatal]
  - Drug ineffective [Unknown]
  - Off label use [Recovered/Resolved]
  - Off label use [Recovered/Resolved]

NARRATIVE: CASE EVENT DATE: 20230908
